FAERS Safety Report 7168331-2 (Version None)
Quarter: 2010Q4

REPORT INFORMATION
  Report Type: 
  Country: None (occurrence: None)
  Receive Date: 20101216
  Receipt Date: 20101210
  Transmission Date: 20110411
  Serious: Yes (Hospitalization)
  Sender: FDA-Public Use
  Company Number: JP-ABBOTT-10P-087-0689701-00

PATIENT
  Age: 41 Year
  Sex: Female

DRUGS (1)
  1. LEUPRORELIN DEPOT [Suspect]
     Indication: BREAST CANCER
     Route: 058
     Dates: start: 20061225

REACTIONS (3)
  - CONTUSION [None]
  - FOOT FRACTURE [None]
  - ROAD TRAFFIC ACCIDENT [None]
